FAERS Safety Report 6905544-6 (Version None)
Quarter: 2010Q3

REPORT INFORMATION
  Report Type: 
  Country: None (occurrence: None)
  Receive Date: 20100804
  Receipt Date: 20100723
  Transmission Date: 20110219
  Serious: Yes (Hospitalization, Disabling, Other)
  Sender: FDA-Public Use
  Company Number: US-PFIZER INC-2010042238

PATIENT
  Sex: Female

DRUGS (1)
  1. CHANTIX [Suspect]
     Indication: SMOKING CESSATION THERAPY
     Dosage: STARTER PACK
     Dates: start: 20090102, end: 20090131

REACTIONS (9)
  - ANXIETY [None]
  - BIPOLAR DISORDER [None]
  - DEPRESSION [None]
  - FEAR OF CROWDED PLACES [None]
  - NIGHTMARE [None]
  - RESTLESSNESS [None]
  - SUICIDAL IDEATION [None]
  - TACHYPHRENIA [None]
  - TREMOR [None]
